FAERS Safety Report 7073290-7 (Version None)
Quarter: 2010Q4

REPORT INFORMATION
  Report Type: 
  Country: None (occurrence: None)
  Receive Date: 20101029
  Receipt Date: 20100806
  Transmission Date: 20110411
  Serious: No
  Sender: FDA-Public Use
  Company Number: A0861036A

PATIENT
  Age: 75 Year
  Sex: Male

DRUGS (5)
  1. ADVAIR DISKUS 100/50 [Suspect]
     Indication: CHRONIC OBSTRUCTIVE PULMONARY DISEASE
     Dosage: 250MCG TWICE PER DAY
     Route: 055
  2. LISINOPRIL [Concomitant]
  3. LIBRIUM [Concomitant]
  4. PREVACID [Concomitant]
  5. TRANQUILIZER [Concomitant]
     Indication: DEATH OF RELATIVE

REACTIONS (5)
  - DRUG ADMINISTRATION ERROR [None]
  - DYSPNOEA [None]
  - PANIC REACTION [None]
  - STRESS [None]
  - TREATMENT NONCOMPLIANCE [None]
